FAERS Safety Report 8272204-1 (Version None)
Quarter: 2012Q2

REPORT INFORMATION
  Report Type: 
  Country: None (occurrence: None)
  Receive Date: 20120410
  Receipt Date: 20120320
  Transmission Date: 20120825
  Serious: No
  Sender: FDA-Public Use
  Company Number: US-ROXANE LABORATORIES, INC.-2012-RO-00605RO

PATIENT
  Sex: Female

DRUGS (2)
  1. METHADONE HCL [Suspect]
     Indication: PAIN
     Dosage: 40 MG
     Route: 048
  2. NEURONTIN [Concomitant]
     Indication: NERVE COMPRESSION

REACTIONS (1)
  - DRUG INEFFECTIVE [None]
